FAERS Safety Report 17518549 (Version 1)
Quarter: 2020Q1

REPORT INFORMATION
  Report Type: Spontaneous
  Country: NL (occurrence: NL)
  Receive Date: 20200310
  Receipt Date: 20200310
  Transmission Date: 20200409
  Serious: Yes (Hospitalization)
  Sender: FDA-Public Use
  Company Number: NL-TEVA-2020-NL-1195482

PATIENT
  Sex: Male
  Weight: 3.2 kg

DRUGS (2)
  1. ASCAL (CARBASALAATCALCIUM) [Concomitant]
     Dosage: 38 MG (MILLIGRAMS)
  2. METHYLDOPA. [Suspect]
     Active Substance: METHYLDOPA
     Indication: GESTATIONAL HYPERTENSION
     Dosage: 500 MG (MILLIGRAM), 3 TIMES A DAY, 1

REACTIONS (3)
  - Hyperhidrosis [Unknown]
  - Maternal exposure during pregnancy [Unknown]
  - Hypothermia neonatal [Unknown]
